FAERS Safety Report 6872244-0 (Version None)
Quarter: 2010Q3

REPORT INFORMATION
  Report Type: 
  Country: None (occurrence: None)
  Receive Date: 20100723
  Receipt Date: 20100712
  Transmission Date: 20110219
  Serious: Yes (Hospitalization, Other)
  Sender: FDA-Public Use
  Company Number: US-ELI_LILLY_AND_COMPANY-US201007003411

PATIENT
  Sex: Female

DRUGS (7)
  1. FORTEO [Suspect]
     Indication: OSTEOPOROSIS
     Dosage: 20 UG, DAILY (1/D)
     Route: 065
  2. FORTEO [Suspect]
     Dosage: 20 UG, DAILY (1/D)
     Route: 065
     Dates: start: 20100401
  3. DILANTIN [Concomitant]
     Dosage: 300 MG, EACH EVENING
  4. LEXAPRO [Concomitant]
     Dosage: 30 MG, OTHER
  5. OMEPRAZOLE [Concomitant]
     Dosage: 20 MG, DAILY (1/D)
  6. PROMETHAZINE [Concomitant]
     Dosage: 25 MG, AS NEEDED
  7. KEPPRA [Concomitant]
     Dosage: 1000 MG, 2/D

REACTIONS (5)
  - CONVULSION [None]
  - DEPRESSION [None]
  - HALLUCINATION [None]
  - INCOHERENT [None]
  - LOSS OF CONSCIOUSNESS [None]
